FAERS Safety Report 9407586 (Version 4)
Quarter: 2015Q4

REPORT INFORMATION
  Report Type: Report from Study
  Country: US (occurrence: US)
  Receive Date: 20130718
  Receipt Date: 20151026
  Transmission Date: 20160305
  Serious: Yes (Hospitalization)
  Sender: FDA-Public Use
  Company Number: US-ROCHE-1250094

PATIENT
  Age: 45 Year
  Sex: Male

DRUGS (9)
  1. LUCENTIS [Suspect]
     Active Substance: RANIBIZUMAB
     Indication: DIABETIC RETINOPATHY
  2. BEPREVE [Concomitant]
     Indication: EYE ALLERGY
     Dosage: AS REQUIRED
     Route: 065
  3. NEO-SYNEPHRINE [Concomitant]
     Active Substance: PHENYLEPHRINE HYDROCHLORIDE
     Route: 065
  4. LUCENTIS [Suspect]
     Active Substance: RANIBIZUMAB
     Indication: DIABETIC EYE DISEASE
     Dosage: OS
     Route: 050
     Dates: start: 20121221
  5. MYDRIACYL [Concomitant]
     Active Substance: TROPICAMIDE
     Route: 065
  6. LUCENTIS [Suspect]
     Active Substance: RANIBIZUMAB
     Indication: DIABETIC RETINAL OEDEMA
     Route: 050
     Dates: start: 20121127
  7. GLYBURIDE. [Concomitant]
     Active Substance: GLYBURIDE
  8. GLIPIZIDE. [Concomitant]
     Active Substance: GLIPIZIDE
     Indication: PRODUCT USED FOR UNKNOWN INDICATION
  9. LANTUS [Concomitant]
     Active Substance: INSULIN GLARGINE
     Indication: PRODUCT USED FOR UNKNOWN INDICATION

REACTIONS (8)
  - Ocular hyperaemia [Unknown]
  - Eye pruritus [Unknown]
  - Optic disc vascular disorder [Unknown]
  - Visual acuity reduced [Unknown]
  - Corneal abrasion [Unknown]
  - Vision blurred [Unknown]
  - Blood glucose decreased [Recovered/Resolved]
  - Visual acuity reduced [Unknown]

NARRATIVE: CASE EVENT DATE: 201306
